FAERS Safety Report 7835068-3 (Version None)
Quarter: 2011Q4

REPORT INFORMATION
  Report Type: 
  Country: None (occurrence: None)
  Receive Date: 20111020
  Receipt Date: 20111007
  Transmission Date: 20120403
  Serious: Yes (Hospitalization)
  Sender: FDA-Public Use
  Company Number: FK201101977

PATIENT
  Age: 10 Year
  Sex: Female
  Weight: 29 kg

DRUGS (11)
  1. CEFOTAXIME (CEFOTAXIME) (CEFOTAXIME) [Concomitant]
  2. DICLOFENAC SODIUM [Concomitant]
  3. SUXAMETHONIUM (SUXAMETHONIUM) (SUXAMETHONIUM) [Concomitant]
  4. METRONIDAZOLE [Concomitant]
  5. MORPHINE [Concomitant]
  6. SALBUTAMOL (SALBUTAMOL) (SALBUTAMOL) [Concomitant]
  7. PARACETAMOL (PARACETAMOL) (PARACETAMOL) [Concomitant]
  8. VECURONIUM BROMIDE (VECURONIUM BROMIDE) (VECURONIUM BROMIDE) [Concomitant]
  9. ONDANSETRON [Suspect]
     Indication: PROCEDURAL NAUSEA
     Dosage: 4 MG, INTRAVENOUS (NOT OTHERWISE SPECIFIED)
     Route: 042
     Dates: start: 20110906, end: 20110907
  10. IBUPROFEN [Concomitant]
  11. THIPENTONE (THIOPENTAL) (THIOPENTAL) [Concomitant]

REACTIONS (7)
  - BLOOD GLUCOSE DECREASED [None]
  - MALAISE [None]
  - LOSS OF CONSCIOUSNESS [None]
  - SYNCOPE [None]
  - CYANOSIS [None]
  - CHEST DISCOMFORT [None]
  - VISUAL IMPAIRMENT [None]
